FAERS Safety Report 14630986 (Version 1)
Quarter: 2018Q1

REPORT INFORMATION
  Report Type: Spontaneous
  Country: US (occurrence: US)
  Receive Date: 20180313
  Receipt Date: 20180313
  Transmission Date: 20180509
  Serious: Yes (Hospitalization)
  Sender: FDA-Public Use
  Company Number: US-PROCTER+GAMBLE-GS16085768

PATIENT
  Age: 88 Year
  Sex: Female
  Weight: 72.2 kg

DRUGS (12)
  1. HYDROCODONE BITARTRATE AND ACETAMINOPHEN [Concomitant]
     Active Substance: ACETAMINOPHEN\HYDROCODONE BITARTRATE
     Indication: PAIN
     Dosage: 5/325 TWICE DAILY
  2. TOPROL-XL                          /00376903/ [Concomitant]
     Indication: ATRIAL FIBRILLATION
     Dosage: 100 MG, EVENING
  3. ZANTAC [Concomitant]
     Active Substance: RANITIDINE HYDROCHLORIDE
     Indication: GASTROOESOPHAGEAL REFLUX DISEASE
     Dosage: 150 MG, 2 /DAY
     Route: 048
  4. MAG-OX [Concomitant]
     Active Substance: MAGNESIUM OXIDE
     Dosage: 400 MG, 2 /DAY
     Route: 048
  5. HUMULIN 70/30 [Concomitant]
     Active Substance: INSULIN HUMAN
     Dosage: 35 UNIT, MORNING
     Route: 058
  6. PRAVASTATIN. [Concomitant]
     Active Substance: PRAVASTATIN
     Indication: HYPERLIPIDAEMIA
     Dosage: 80 MG, DAILY
  7. HUMULIN 70/30 [Concomitant]
     Active Substance: INSULIN HUMAN
     Dosage: 15 UNIT, EVENING
     Route: 058
  8. COUMADIN [Concomitant]
     Active Substance: WARFARIN SODIUM
     Indication: CEREBROVASCULAR ACCIDENT
  9. METAMUCIL THERAPY FOR REGULARITY [Suspect]
     Active Substance: PSYLLIUM HUSK
     Dosage: 1 TBSP, DAILY
     Route: 048
     Dates: start: 201607
  10. LOSARTAN. [Concomitant]
     Active Substance: LOSARTAN
     Indication: ATRIAL FIBRILLATION
     Dosage: 50 MG DAILY
  11. MIRALAX [Concomitant]
     Active Substance: POLYETHYLENE GLYCOL 3350
  12. KLOR-CON M10 [Concomitant]
     Active Substance: POTASSIUM CHLORIDE
     Dosage: 2 TABLET (20 MEQ TOTAL), DAILY

REACTIONS (31)
  - White blood cells urine positive [Recovered/Resolved]
  - Abdominal pain [Recovered/Resolved]
  - Dry mouth [Recovered/Resolved]
  - Posture abnormal [Unknown]
  - Escherichia infection [Recovered/Resolved]
  - Dehydration [Recovered/Resolved]
  - Nitrite urine present [Recovered/Resolved]
  - Acute kidney injury [Recovered/Resolved]
  - Coordination abnormal [Unknown]
  - Blood glucose increased [Recovered/Resolved]
  - Diarrhoea [Recovered/Resolved]
  - Melaena [Recovered/Resolved]
  - Back pain [Unknown]
  - Urinary tract infection [Recovered/Resolved]
  - Hyperhidrosis [Unknown]
  - Faeces discoloured [Recovered/Resolved]
  - Blood pressure decreased [Recovered/Resolved]
  - Red blood cells urine positive [Recovered/Resolved]
  - Asthenia [Unknown]
  - Constipation [Recovered/Resolved]
  - Product contamination microbial [Unknown]
  - Gait disturbance [Unknown]
  - Abnormal faeces [Recovered/Resolved]
  - Headache [Recovered/Resolved]
  - Product contamination physical [Unknown]
  - Vomiting [Recovered/Resolved]
  - Muscular weakness [Unknown]
  - Klebsiella infection [Recovered/Resolved]
  - Nausea [Recovered/Resolved]
  - Balance disorder [Unknown]
  - Blood lactic acid increased [Recovered/Resolved]

NARRATIVE: CASE EVENT DATE: 201606
